FAERS Safety Report 9885446 (Version 3)
Quarter: 2014Q3

REPORT INFORMATION
  Report Type: Spontaneous
  Country: US (occurrence: US)
  Receive Date: 20140210
  Receipt Date: 20140804
  Transmission Date: 20150326
  Serious: Yes (Hospitalization, Other)
  Sender: FDA-Public Use
  Company Number: US-BAYER-2014-020381

PATIENT
  Age: 27 Year
  Sex: Female
  Weight: 39.46 kg

DRUGS (1)
  1. MIRENA [Suspect]
     Active Substance: LEVONORGESTREL
     Indication: CONTRACEPTION
     Dosage: 20 MCG/24HR, CONT
     Route: 015
     Dates: start: 20110207, end: 20120123

REACTIONS (6)
  - Genital haemorrhage [None]
  - Injury [None]
  - Uterine perforation [None]
  - Emotional distress [None]
  - Pelvic pain [None]
  - Device issue [None]

NARRATIVE: CASE EVENT DATE: 201112
